FAERS Safety Report 26040384 (Version 1)
Quarter: 2025Q4

REPORT INFORMATION
  Report Type: Other
  Country: CN (occurrence: CN)
  Receive Date: 20251113
  Receipt Date: 20251113
  Transmission Date: 20260117
  Serious: Yes (Hospitalization, Other)
  Sender: CHIA TAI TIANQING PHARMACEUTICAL GROUP
  Company Number: None

PATIENT
  Age: 62 Year
  Sex: Female
  Weight: 50.0 kg

DRUGS (2)
  1. FULVESTRANT [Suspect]
     Active Substance: FULVESTRANT
     Indication: Hormone receptor positive HER2 negative breast cancer
     Dosage: 0.50 G, ONLY ONCE
     Route: 030
     Dates: start: 20251016, end: 20251016
  2. DENOSUMAB [Concomitant]
     Active Substance: DENOSUMAB
     Indication: Hormone receptor positive HER2 negative breast cancer
     Dosage: 120.00 MG, QD
     Route: 058
     Dates: start: 20251016, end: 20251016

REACTIONS (1)
  - Granulocyte count decreased [Unknown]

NARRATIVE: CASE EVENT DATE: 20251020
